FAERS Safety Report 4379548-4 (Version None)
Quarter: 2004Q2

REPORT INFORMATION
  Report Type: 
  Country: None (occurrence: None)
  Receive Date: 20040610
  Receipt Date: 20040601
  Transmission Date: 20050107
  Serious: Yes (Hospitalization)
  Sender: FDA-Public Use
  Company Number: SUS1-2004-00330

PATIENT
  Age: 6 Year
  Sex: Female

DRUGS (10)
  1. ADDERALL 10 [Suspect]
     Indication: ATTENTION DEFICIT/HYPERACTIVITY DISORDER
     Dosage: 5 MG TITRATED TO 20 MG AM, 10 MG PRN,
     Dates: start: 20040324, end: 20040421
  2. ADDERALL 10 [Suspect]
     Indication: PSYCHOMOTOR HYPERACTIVITY
     Dosage: 5 MG TITRATED TO 20 MG AM, 10 MG PRN,
     Dates: start: 20040324, end: 20040421
  3. ADDERALL 10 [Suspect]
     Indication: ATTENTION DEFICIT/HYPERACTIVITY DISORDER
     Dosage: 30 MG, 1X/DAY, QD
     Dates: start: 20040421
  4. ADDERALL 10 [Suspect]
     Indication: PSYCHOMOTOR HYPERACTIVITY
     Dosage: 30 MG, 1X/DAY, QD
     Dates: start: 20040421
  5. ZANTAC [Concomitant]
  6. FLOONASE (FLUTICASONE PROPIONATE) [Concomitant]
  7. MIRLAX [Concomitant]
  8. MONTELUKAST SODIUM (MONTELUKAST SODIUM) [Concomitant]
  9. ZYRTEC [Concomitant]
  10. ADVAIR [Concomitant]

REACTIONS (17)
  - ACUTE PSYCHOSIS [None]
  - AGITATION [None]
  - CHEST PAIN [None]
  - CONVULSION [None]
  - DRUG SCREEN POSITIVE [None]
  - DRUG TOXICITY [None]
  - DYSTONIA [None]
  - EYE MOVEMENT DISORDER [None]
  - HALLUCINATION, VISUAL [None]
  - INITIAL INSOMNIA [None]
  - IRRITABILITY [None]
  - MOVEMENT DISORDER [None]
  - MUSCULOSKELETAL STIFFNESS [None]
  - PAIN IN EXTREMITY [None]
  - RESPIRATORY ARREST [None]
  - SCREAMING [None]
  - TACHYCARDIA [None]
